FAERS Safety Report 25109996 (Version 1)
Quarter: 2025Q1

REPORT INFORMATION
  Report Type: Spontaneous
  Country: US (occurrence: US)
  Receive Date: 20250324
  Receipt Date: 20250324
  Transmission Date: 20250409
  Serious: No
  Sender: ROCHE
  Company Number: US-ROCHE-10000236594

PATIENT
  Age: 64 Year
  Sex: Female
  Weight: 91.17 kg

DRUGS (1)
  1. ACTEMRA [Suspect]
     Active Substance: TOCILIZUMAB
     Indication: Giant cell arteritis
     Dosage: LEFT UPPER QUAD, GLUTEUS
     Route: 058
     Dates: start: 20250213

REACTIONS (3)
  - Accidental exposure to product [Unknown]
  - Product complaint [Unknown]
  - No adverse event [Unknown]

NARRATIVE: CASE EVENT DATE: 20250220
